FAERS Safety Report 7801683-6 (Version None)
Quarter: 2011Q3

REPORT INFORMATION
  Report Type: 
  Country: None (occurrence: None)
  Receive Date: 20110930
  Receipt Date: 20110927
  Transmission Date: 20111222
  Serious: Yes (Other)
  Sender: FDA-Public Use
  Company Number: 2011029836

PATIENT
  Age: 82 Year
  Sex: Male
  Weight: 81.6475 kg

DRUGS (22)
  1. HIZENTRA [Suspect]
  2. AVAPRO [Concomitant]
  3. NEXIUM [Concomitant]
  4. VERAPAMIL [Concomitant]
  5. PREDNISONE TAB [Concomitant]
  6. ACETAMINOPHEN [Concomitant]
  7. CALCIUM WITH D (CALCIUM WITH VITAMIN D) [Concomitant]
  8. THEOPHYLLINE [Concomitant]
  9. SY,BICORT (BUDESONIDE W/FORMOTEROL FUMARATE) [Concomitant]
  10. HIZENTRA [Suspect]
     Indication: IMMUNODEFICIENCY COMMON VARIABLE
     Dosage: SEE IMAGE
     Route: 058
     Dates: start: 20110924
  11. HIZENTRA [Suspect]
     Indication: IMMUNODEFICIENCY COMMON VARIABLE
     Dosage: SEE IMAGE
     Route: 058
     Dates: start: 20100615
  12. XOPENEX [Concomitant]
  13. SINGULAIR [Concomitant]
  14. HIZENTRA [Suspect]
  15. NITROQUICK (GLYCERYL TRINITRATE) [Concomitant]
  16. IMDUR [Concomitant]
  17. QVAR 40 [Concomitant]
  18. HIZENTRA [Suspect]
  19. HYDROCORTONE [Concomitant]
  20. ASPIRIN [Concomitant]
  21. AXID XR (NIZATIDINE) [Concomitant]
  22. TUMS (CALCIUM CARBONATE) [Concomitant]

REACTIONS (2)
  - ASTHMA [None]
  - PYREXIA [None]
